FAERS Safety Report 8507037-1 (Version None)
Quarter: 2012Q3

REPORT INFORMATION
  Report Type: 
  Country: None (occurrence: None)
  Receive Date: 20120712
  Receipt Date: 20120709
  Transmission Date: 20120928
  Serious: Yes (Other)
  Sender: FDA-Public Use
  Company Number: PHHY2012BR059210

PATIENT
  Sex: Female
  Weight: 81 kg

DRUGS (8)
  1. METOPROLOL SUCCINATE [Concomitant]
     Indication: HYPERTENSION
     Dosage: 50 MG, ONE TABLET A DAY
     Route: 048
  2. CALTREN [Concomitant]
     Indication: HYPERTENSION
     Dosage: 10 MG, ONE TABLET A DAY (AT NIGHT)
     Route: 048
  3. DURATESTON [Concomitant]
     Indication: HORMONE REPLACEMENT THERAPY
     Dosage: 1 DF, EVERY THREE MONTHS
     Route: 030
  4. DIOVAN HCT [Suspect]
     Dosage: 1 DF (320/12.5 MG), A DAY
     Route: 048
  5. LIBIAN [Concomitant]
     Indication: HORMONE REPLACEMENT THERAPY
     Dosage: 2.5 MG, ONE TABLET A DAY
     Route: 048
  6. DIOVAN HCT [Suspect]
     Indication: HYPERTENSION
     Dosage: 1 DF (80/12.5 MG), A DAY
     Route: 048
  7. DIOVAN HCT [Suspect]
     Dosage: 1 DF (160/12.5 MG), A DAY
     Route: 048
  8. AMLODOPINE BESYLATE AND VALSARTAN [Suspect]
     Dosage: UNK UKN, UNK

REACTIONS (14)
  - SENSORY DISTURBANCE [None]
  - COUGH [None]
  - HYPERTENSION [None]
  - FEELING ABNORMAL [None]
  - VERTIGO [None]
  - CHOKING [None]
  - NAUSEA [None]
  - MALAISE [None]
  - INJECTION SITE MASS [None]
  - HYPOTHYROIDISM [None]
  - PRURITUS [None]
  - HEADACHE [None]
  - INJECTION SITE PRURITUS [None]
  - OEDEMA PERIPHERAL [None]
